FAERS Safety Report 6329989-0 (Version None)
Quarter: 2009Q3

REPORT INFORMATION
  Report Type: 
  Country: None (occurrence: None)
  Receive Date: 20090826
  Receipt Date: 20090817
  Transmission Date: 20100115
  Serious: Yes (Life-Threatening, Hospitalization, Other)
  Sender: FDA-Public Use
  Company Number: DK-ABBOTT-09P-044-0571126-00

PATIENT
  Sex: Female
  Weight: 51 kg

DRUGS (4)
  1. HUMIRA [Interacting]
     Indication: CROHN'S DISEASE
     Route: 058
     Dates: start: 20061006, end: 20070321
  2. AZATHIOPRIN [Interacting]
     Indication: CROHN'S DISEASE
     Dates: start: 20000919, end: 20090401
  3. REMICADE [Suspect]
     Indication: CROHN'S DISEASE
     Dosage: 5 MG/KG
     Route: 050
     Dates: start: 20060406, end: 20060823
  4. ORENCIA [Suspect]
     Indication: CROHN'S DISEASE
     Route: 042
     Dates: start: 20071026, end: 20080307

REACTIONS (5)
  - COLON CANCER [None]
  - COLON CANCER METASTATIC [None]
  - CROHN'S DISEASE [None]
  - DRUG INTERACTION [None]
  - MASS [None]
